FAERS Safety Report 9341871 (Version 5)
Quarter: 2013Q4

REPORT INFORMATION
  Report Type: Spontaneous
  Country: US (occurrence: US)
  Receive Date: 20130611
  Receipt Date: 20131010
  Transmission Date: 20140711
  Serious: Yes (Hospitalization, Other)
  Sender: FDA-Public Use
  Company Number: US-PFIZER INC-2013174178

PATIENT
  Age: 45 Year
  Sex: Female
  Weight: 63.49 kg

DRUGS (2)
  1. LYRICA [Suspect]
     Indication: CONVULSION
     Dosage: 400MG IN MORNING AND 250MG AT NIGHT (2X/DAY)
     Dates: start: 2007
  2. NUCYNTA [Suspect]
     Indication: PROCEDURAL PAIN
     Dosage: UNK
     Dates: end: 2011

REACTIONS (3)
  - Grand mal convulsion [Unknown]
  - Drug ineffective [Unknown]
  - Headache [Unknown]
